FAERS Safety Report 6303582-8 (Version None)
Quarter: 2009Q3

REPORT INFORMATION
  Report Type: 
  Country: None (occurrence: None)
  Receive Date: 20090807
  Receipt Date: 20090807
  Transmission Date: 20100115
  Serious: Yes (Other)
  Sender: FDA-Public Use
  Company Number: None

PATIENT
  Age: 22 Year
  Sex: Female
  Weight: 58.9676 kg

DRUGS (1)
  1. MIRENA [Suspect]
     Dates: start: 20080306, end: 20090806

REACTIONS (12)
  - ANXIETY [None]
  - DEPRESSION [None]
  - DIZZINESS [None]
  - HEART RATE IRREGULAR [None]
  - INCOHERENT [None]
  - INSOMNIA [None]
  - LOSS OF CONSCIOUSNESS [None]
  - MUSCLE SPASMS [None]
  - PANIC ATTACK [None]
  - PYREXIA [None]
  - TINNITUS [None]
  - VISION BLURRED [None]
